FAERS Safety Report 9115345 (Version 2)
Quarter: 2013Q1

REPORT INFORMATION
  Report Type: Spontaneous
  Country: US (occurrence: None)
  Receive Date: 20130129
  Receipt Date: 20130301
  Transmission Date: 20140127
  Serious: Yes (Other)
  Sender: FDA-Public Use
  Company Number: 20130013

PATIENT
  Age: 56 Year
  Sex: Male

DRUGS (1)
  1. VENOFER (IRON SUCROSE INJECTION, USP) (2340-10) 20 MG/ML [Suspect]
     Indication: NEPHROGENIC ANAEMIA
     Dosage: TWICE A MONTH
     Dates: start: 2010, end: 201212

REACTIONS (3)
  - Platelet count decreased [None]
  - Epistaxis [None]
  - Rash pruritic [None]
